FAERS Safety Report 11130431 (Version 3)
Quarter: 2015Q2

REPORT INFORMATION
  Report Type: Spontaneous
  Country: US (occurrence: US)
  Receive Date: 20150522
  Receipt Date: 20150602
  Transmission Date: 20150821
  Serious: Yes (Death, Hospitalization)
  Sender: FDA-Public Use
  Company Number: US-009507513-1505USA009212

PATIENT
  Age: 47 Year
  Sex: Female

DRUGS (4)
  1. EMEND [Suspect]
     Active Substance: APREPITANT
     Dosage: 150 MG, UNK
     Dates: start: 20150126, end: 20150126
  2. EMEND [Suspect]
     Active Substance: APREPITANT
     Indication: PROPHYLAXIS OF NAUSEA AND VOMITING
     Dosage: 150 MG, UNK
     Route: 042
     Dates: start: 20141113, end: 20141113
  3. EMEND [Suspect]
     Active Substance: APREPITANT
     Dosage: 150 MG, UNK
     Dates: start: 20150105, end: 20150105
  4. EMEND [Suspect]
     Active Substance: APREPITANT
     Dosage: 150 MG, UNK
     Dates: start: 20141215, end: 20141215

REACTIONS (2)
  - Ascites [Unknown]
  - Death [Fatal]

NARRATIVE: CASE EVENT DATE: 20150215
